FAERS Safety Report 15210316 (Version 1)
Quarter: 2018Q3

REPORT INFORMATION
  Report Type: Spontaneous
  Country: US (occurrence: US)
  Receive Date: 20180727
  Receipt Date: 20180727
  Transmission Date: 20181010
  Serious: No
  Sender: FDA-Public Use
  Company Number: US-ACTELION-A-US2018-176173

PATIENT
  Age: 76 Year
  Sex: Male

DRUGS (2)
  1. DIFICID [Concomitant]
     Active Substance: FIDAXOMICIN
  2. TRACLEER [Suspect]
     Active Substance: BOSENTAN
     Indication: PRODUCT USED FOR UNKNOWN INDICATION
     Dosage: 62.5 MG, BID
     Route: 048
     Dates: start: 20180206

REACTIONS (2)
  - Tooth infection [Recovered/Resolved]
  - Clostridium difficile infection [Not Recovered/Not Resolved]
